FAERS Safety Report 8823186 (Version 1)
Quarter: 2012Q4

REPORT INFORMATION
  Report Type: 
  Country: DE (occurrence: DE)
  Receive Date: 20121003
  Receipt Date: 20121003
  Transmission Date: 20130627
  Serious: Yes (Hospitalization)
  Sender: FDA-Public Use
  Company Number: DE-PFIZER INC-2012240392

PATIENT
  Age: 39 Year
  Sex: Male
  Weight: 103 kg

DRUGS (5)
  1. GENOTROPIN [Suspect]
     Indication: GROWTH HORMONE DEFICIENCY
     Dosage: 0.2 mg, 7/wk
     Route: 058
     Dates: start: 20030715
  2. TESTOSTERONE [Concomitant]
     Indication: BLOOD LUTEINISING HORMONE DECREASED
     Dosage: UNK
     Dates: start: 19960701
  3. TESTOSTERONE [Concomitant]
     Indication: BLOOD FOLLICLE STIMULATING HORMONE DECREASED
  4. TESTOSTERONE [Concomitant]
     Indication: HYPOGONADISM MALE
  5. MARCUMAR [Concomitant]
     Indication: COAGULOPATHY
     Dosage: UNK
     Dates: start: 20040114

REACTIONS (1)
  - Aortic aneurysm [Unknown]
